FAERS Safety Report 5273525-7 (Version None)
Quarter: 2007Q1

REPORT INFORMATION
  Report Type: 
  Country: None (occurrence: None)
  Receive Date: 20070321
  Receipt Date: 20070321
  Transmission Date: 20070707
  Serious: Yes (Death)
  Sender: FDA-Public Use
  Company Number: None

PATIENT
  Age: 37 Year
  Sex: Female
  Weight: 75 kg

DRUGS (18)
  1. CYCLOPHOSPHAMIDE [Suspect]
     Indication: ACUTE LYMPHOCYTIC LEUKAEMIA
     Dosage: 650 MG/M2 DAY 1, 15, 29 IV
     Route: 042
     Dates: start: 20070131, end: 20070227
  2. CYTARABINE [Suspect]
     Indication: ACUTE LYMPHOCYTIC LEUKAEMIA
     Dosage: 75 MG/M2 WEEKLY X 4 DAYS IV
     Route: 042
     Dates: start: 20070131, end: 20070227
  3. MERCAPTOPURINE [Concomitant]
  4. METHOTREXATE [Concomitant]
  5. ACYCLOVIR [Concomitant]
  6. CEFTAZIDIME [Concomitant]
  7. FLUCONAZOLE [Concomitant]
  8. FLUOXETINE [Concomitant]
  9. LORAZEPAM [Concomitant]
  10. MG OXIDE [Concomitant]
  11. METOPROLOL SUCCINATE [Concomitant]
  12. METRONIDAZOLE [Concomitant]
  13. PENICILLIN VK [Concomitant]
  14. POSACONAZOLE [Concomitant]
  15. ONDANSETRON [Concomitant]
  16. POTASSIUM CHLORIDE [Concomitant]
  17. PROCHLORPERAZINE [Concomitant]
  18. MORPHINE [Concomitant]

REACTIONS (4)
  - CARDIO-RESPIRATORY ARREST [None]
  - HEADACHE [None]
  - MENTAL STATUS CHANGES [None]
  - PANCYTOPENIA [None]
